FAERS Safety Report 6264885-9 (Version None)
Quarter: 2009Q3

REPORT INFORMATION
  Report Type: 
  Country: None (occurrence: None)
  Receive Date: 20090713
  Receipt Date: 20090708
  Transmission Date: 20100115
  Serious: Yes (Hospitalization, Other)
  Sender: FDA-Public Use
  Company Number: US-BIOGENIDEC-2009BI011892

PATIENT
  Age: 51 Year
  Sex: Female

DRUGS (1)
  1. TYSABRI [Suspect]
     Indication: MULTIPLE SCLEROSIS
     Route: 042
     Dates: start: 20061025, end: 20090311

REACTIONS (12)
  - ENDOCARDITIS STAPHYLOCOCCAL [None]
  - ESCHERICHIA URINARY TRACT INFECTION [None]
  - EXTRADURAL ABSCESS [None]
  - HYPOGAMMAGLOBULINAEMIA [None]
  - HYPOTENSION [None]
  - MULTIPLE SCLEROSIS RELAPSE [None]
  - NON-CARDIAC CHEST PAIN [None]
  - PLATELET COUNT INCREASED [None]
  - PNEUMONIA [None]
  - SINUS TACHYCARDIA [None]
  - SPLENOMEGALY [None]
  - VULVOVAGINAL MYCOTIC INFECTION [None]
